FAERS Safety Report 13941226 (Version 1)
Quarter: 2017Q3

REPORT INFORMATION
  Report Type: Spontaneous
  Country: US (occurrence: US)
  Receive Date: 20170906
  Receipt Date: 20170906
  Transmission Date: 20171127
  Serious: Yes (Other)
  Sender: FDA-Public Use
  Company Number: US-SAOL THERAPEUTICS-2017SAO01367

PATIENT
  Sex: Female

DRUGS (3)
  1. BACLOFEN. [Suspect]
     Active Substance: BACLOFEN
     Indication: MUSCLE SPASTICITY
     Dosage: UNK
     Route: 037
  2. BACLOFEN. [Suspect]
     Active Substance: BACLOFEN
     Indication: CEREBRAL PALSY
     Dosage: UNK
     Route: 037
  3. BACLOFEN. [Suspect]
     Active Substance: BACLOFEN
     Dosage: UNK
     Route: 037

REACTIONS (15)
  - Anxiety [Not Recovered/Not Resolved]
  - Agitation [Unknown]
  - Hypersomnia [Unknown]
  - Mood altered [Not Recovered/Not Resolved]
  - Depression suicidal [Not Recovered/Not Resolved]
  - Decreased appetite [Not Recovered/Not Resolved]
  - Nausea [Unknown]
  - Fatigue [None]
  - Crying [Unknown]
  - Insomnia [Unknown]
  - Retching [Unknown]
  - Hyperhidrosis [Unknown]
  - Personality change [Not Recovered/Not Resolved]
  - Loss of personal independence in daily activities [None]
  - Muscle spasticity [Unknown]

NARRATIVE: CASE EVENT DATE: 2016
